FAERS Safety Report 20966916 (Version 1)
Quarter: 2022Q2

REPORT INFORMATION
  Report Type: Spontaneous
  Country: US (occurrence: US)
  Receive Date: 20220616
  Receipt Date: 20220616
  Transmission Date: 20220721
  Serious: Yes (Disabling)
  Sender: FDA-Public Use
  Company Number: US-TEVA-2022-US-2045797

PATIENT
  Sex: Male

DRUGS (1)
  1. METHYLPREDNISOLONE [Suspect]
     Active Substance: METHYLPREDNISOLONE
     Indication: Plantar fasciitis
     Route: 065

REACTIONS (7)
  - Disability [Unknown]
  - Plantar fasciitis [Unknown]
  - Dysstasia [Unknown]
  - Gait disturbance [Unknown]
  - Drug ineffective [Unknown]
  - Product temperature excursion issue [Unknown]
  - Recalled product administered [Unknown]
